FAERS Safety Report 19467230 (Version 1)
Quarter: 2021Q2

REPORT INFORMATION
  Report Type: Spontaneous
  Country: US (occurrence: US)
  Receive Date: 20210628
  Receipt Date: 20210628
  Transmission Date: 20210717
  Serious: Yes (Hospitalization, Other)
  Sender: FDA-Public Use
  Company Number: US-HIKMA PHARMACEUTICALS USA INC.-US-H14001-21-02971

PATIENT
  Age: 54 Year
  Sex: Male
  Weight: 97.5 kg

DRUGS (3)
  1. REMODULIN [Suspect]
     Active Substance: TREPROSTINIL
     Route: 058
     Dates: start: 20190110
  2. METHAMPHETAMINE [Suspect]
     Active Substance: METHAMPHETAMINE
     Indication: PRODUCT USED FOR UNKNOWN INDICATION
     Dosage: UNKNOWN
     Route: 065
  3. REMODULIN [Suspect]
     Active Substance: TREPROSTINIL
     Indication: PULMONARY ARTERIAL HYPERTENSION
     Dosage: UNKNOWN
     Route: 058
     Dates: start: 20190110

REACTIONS (6)
  - Dyspnoea [Unknown]
  - Pain [Unknown]
  - Adverse event [Unknown]
  - Respiratory failure [Unknown]
  - Cardiac failure [Unknown]
  - Fluid overload [Unknown]

NARRATIVE: CASE EVENT DATE: 202105
